FAERS Safety Report 4780393-6 (Version None)
Quarter: 2005Q3

REPORT INFORMATION
  Report Type: 
  Country: None (occurrence: None)
  Receive Date: 20050926
  Receipt Date: 20050926
  Transmission Date: 20060218
  Serious: No
  Sender: FDA-Public Use
  Company Number: None

PATIENT
  Age: 32 Year
  Sex: Male
  Weight: 75 kg

DRUGS (3)
  1. ZOSYN [Suspect]
     Dosage: 3.375 GM Q6H IV
     Route: 042
     Dates: start: 20050913, end: 20050919
  2. PROTONIX [Concomitant]
  3. VALIUM [Concomitant]

REACTIONS (2)
  - RASH ERYTHEMATOUS [None]
  - RASH PRURITIC [None]
